FAERS Safety Report 17486901 (Version 3)
Quarter: 2020Q1

REPORT INFORMATION
  Report Type: Spontaneous
  Country: US (occurrence: US)
  Receive Date: 20200303
  Receipt Date: 20200325
  Transmission Date: 20200409
  Serious: Yes (Hospitalization, Other)
  Sender: FDA-Public Use
  Company Number: US-ELI_LILLY_AND_COMPANY-US202002014087

PATIENT
  Age: 45 Year
  Sex: Male

DRUGS (3)
  1. TALTZ [Suspect]
     Active Substance: IXEKIZUMAB
     Indication: NAIL PSORIASIS
  2. TALTZ [Suspect]
     Active Substance: IXEKIZUMAB
     Indication: PSORIASIS
     Dosage: 160 MG, UNKNOWN
     Route: 058
     Dates: start: 20191115
  3. TALTZ [Suspect]
     Active Substance: IXEKIZUMAB
     Indication: ARTHROPATHY
     Dosage: 80 MG, 2/M
     Route: 058
     Dates: end: 20200115

REACTIONS (4)
  - Small intestinal obstruction [Recovered/Resolved]
  - Crohn^s disease [Unknown]
  - Psoriasis [Unknown]
  - Inflammatory bowel disease [Unknown]
